FAERS Safety Report 4414210-0 (Version None)
Quarter: 2004Q2

REPORT INFORMATION
  Report Type: 
  Country: None (occurrence: None)
  Receive Date: 20040630
  Receipt Date: 20040525
  Transmission Date: 20050107
  Serious: No
  Sender: FDA-Public Use
  Company Number: 04P-163-0261949-00

PATIENT
  Age: 60 Year
  Sex: Female
  Weight: 60.782 kg

DRUGS (7)
  1. HUMIRA [Suspect]
     Indication: RHEUMATOID ARTHRITIS
     Dosage: 40 MG, 1 IN 2 WK, SUBCUTANEOUS
     Route: 058
     Dates: start: 20031201
  2. METHOTREXATE [Concomitant]
  3. ACETAMINOPHEN AND CODEINE PHOSPHATE [Concomitant]
  4. ALENDRONATE SODIUM [Concomitant]
  5. CALCIUM WITH VITAMIN D [Concomitant]
  6. ALPRAZOLAM [Concomitant]
  7. CELECOXIB [Concomitant]

REACTIONS (2)
  - INJECTION SITE ERYTHEMA [None]
  - OEDEMA PERIPHERAL [None]
